FAERS Safety Report 8651489 (Version 2)
Quarter: 2013Q1

REPORT INFORMATION
  Report Type: Report from Study
  Country: DE (occurrence: DE)
  Receive Date: 20120706
  Receipt Date: 20130204
  Transmission Date: 20140127
  Serious: Yes (Death)
  Sender: FDA-Public Use
  Company Number: DE-GENZYME-CAMP-1002317

PATIENT
  Sex: Male
  Weight: 75.5 kg

DRUGS (5)
  1. CAMPATH [Suspect]
     Indication: T-CELL LYMPHOMA
     Dosage: 30 MG, UNK
     Route: 065
     Dates: start: 20090616, end: 20090826
  2. CYCLOPHOSPHAMIDE [Suspect]
     Indication: T-CELL LYMPHOMA
     Dosage: 750 MG/M2, UNK
     Route: 065
     Dates: start: 20090616, end: 20090825
  3. DOXORUBICIN [Suspect]
     Indication: T-CELL LYMPHOMA
     Dosage: 50 MG/M2, UNK
     Route: 065
     Dates: start: 20090616, end: 20090825
  4. VINCRISTINE [Suspect]
     Indication: T-CELL LYMPHOMA
     Dosage: 1 MG, UNK (STOPPED AT CYCLE 4)
     Route: 065
     Dates: start: 20090616, end: 20090714
  5. PREDNISONE [Suspect]
     Indication: T-CELL LYMPHOMA
     Dosage: 100 MG, UNK
     Route: 065
     Dates: start: 20090825, end: 20090829

REACTIONS (1)
  - Lymphoma [Fatal]
